FAERS Safety Report 4478913-4 (Version None)
Quarter: 2004Q4

REPORT INFORMATION
  Report Type: 
  Country: None (occurrence: None)
  Receive Date: 20041018
  Receipt Date: 20041001
  Transmission Date: 20050328
  Serious: No
  Sender: FDA-Public Use
  Company Number: 2004AL000444

PATIENT
  Age: 84 Year
  Sex: Male

DRUGS (1)
  1. METOCLOPRAMIDE [Suspect]
     Indication: GASTROINTESTINAL MOTILITY DISORDER
     Dosage: 10 MG; TID

REACTIONS (10)
  - ACTIVITIES OF DAILY LIVING IMPAIRED [None]
  - BRADYKINESIA [None]
  - COGWHEEL RIGIDITY [None]
  - CONFUSIONAL STATE [None]
  - DEPRESSION [None]
  - DYSPHAGIA [None]
  - FAILURE TO THRIVE [None]
  - GENERAL PHYSICAL HEALTH DETERIORATION [None]
  - INCONTINENCE [None]
  - WEIGHT DECREASED [None]
